FAERS Safety Report 4530916-7 (Version None)
Quarter: 2004Q4

REPORT INFORMATION
  Report Type: 
  Country: None (occurrence: None)
  Receive Date: 20041215
  Receipt Date: 20041208
  Transmission Date: 20050328
  Serious: Yes (Other)
  Sender: FDA-Public Use
  Company Number: 2004-12-0337

PATIENT
  Sex: Male

DRUGS (3)
  1. CLARINEX [Suspect]
     Dosage: ORAL
     Route: 048
  2. ANTIHYPERTENSIVE AGENT (NOS) [Concomitant]
  3. CHOLESTEROL LOWERING AGENT [Concomitant]

REACTIONS (1)
  - LOSS OF CONSCIOUSNESS [None]
